FAERS Safety Report 21668456 (Version 1)
Quarter: 2022Q4

REPORT INFORMATION
  Report Type: Spontaneous
  Country: JP (occurrence: JP)
  Receive Date: 20221201
  Receipt Date: 20221201
  Transmission Date: 20230112
  Serious: No
  Sender: FDA-Public Use
  Company Number: JP-PFIZER INC-202201337398

PATIENT
  Age: 83 Year
  Sex: Male

DRUGS (2)
  1. PAXLOVID [Suspect]
     Active Substance: NIRMATRELVIR\RITONAVIR
     Indication: COVID-19 treatment
     Dosage: TOOK THE FIRST DOSE AT NIGHT
     Route: 048
     Dates: start: 20221128, end: 20221128
  2. PAXLOVID [Suspect]
     Active Substance: NIRMATRELVIR\RITONAVIR
     Dosage: 2 TABLETS RITONAVIR
     Route: 048
     Dates: start: 20221129

REACTIONS (1)
  - Incorrect dose administered [Unknown]

NARRATIVE: CASE EVENT DATE: 20221129
